FAERS Safety Report 8476745-3 (Version None)
Quarter: 2012Q2

REPORT INFORMATION
  Report Type: 
  Country: None (occurrence: None)
  Receive Date: 20120628
  Receipt Date: 20120620
  Transmission Date: 20120825
  Serious: Yes (Other)
  Sender: FDA-Public Use
  Company Number: US-RB-041095-12

PATIENT
  Sex: Female

DRUGS (5)
  1. SUBUTEX [Suspect]
     Indication: DRUG DEPENDENCE
     Dosage: 16-24 MG
     Route: 065
     Dates: start: 20080901, end: 20090101
  2. SUBOXONE [Suspect]
     Indication: DRUG DEPENDENCE
     Dosage: 12-16 MG DAILY
     Route: 060
     Dates: start: 20090101, end: 20090101
  3. SUBOXONE [Suspect]
     Dosage: 16-24 MG DAILY
     Route: 060
     Dates: start: 20061201, end: 20080901
  4. SUBOXONE [Suspect]
     Indication: DRUG DEPENDENCE
     Dosage: 12-16 MG DAILY
     Route: 060
     Dates: start: 20120609
  5. SUBUTEX [Suspect]
     Dosage: 12-16 MG
     Route: 065
     Dates: start: 20090101, end: 20120609

REACTIONS (7)
  - PARANOIA [None]
  - ACTIVITIES OF DAILY LIVING IMPAIRED [None]
  - SUICIDAL IDEATION [None]
  - MALAISE [None]
  - DEPRESSION [None]
  - WRONG TECHNIQUE IN DRUG USAGE PROCESS [None]
  - SOMNOLENCE [None]
